FAERS Safety Report 7320600-9 (Version None)
Quarter: 2011Q1

REPORT INFORMATION
  Report Type: 
  Country: None (occurrence: None)
  Receive Date: 20110228
  Receipt Date: 20110217
  Transmission Date: 20110831
  Serious: Yes (Hospitalization)
  Sender: FDA-Public Use
  Company Number: JP-ROCHE-690242

PATIENT
  Sex: Male

DRUGS (22)
  1. TOCILIZUMAB [Suspect]
     Route: 041
     Dates: start: 20090528, end: 20090528
  2. TOCILIZUMAB [Suspect]
     Route: 041
     Dates: start: 20090625, end: 20090625
  3. TOCILIZUMAB [Suspect]
     Route: 041
     Dates: start: 20090820, end: 20090820
  4. ALLORIN [Concomitant]
     Route: 048
  5. TOCILIZUMAB [Suspect]
     Indication: RHEUMATOID ARTHRITIS
     Dosage: FORM:INJECTION
     Route: 041
     Dates: start: 20090108, end: 20090108
  6. TOCILIZUMAB [Suspect]
     Route: 041
     Dates: start: 20091113, end: 20091113
  7. TOCILIZUMAB [Suspect]
     Route: 041
     Dates: start: 20090723, end: 20090723
  8. SAXIZON [Concomitant]
     Route: 042
     Dates: start: 20090305, end: 20090305
  9. TOCILIZUMAB [Suspect]
     Route: 041
     Dates: start: 20090430, end: 20090430
  10. TOCILIZUMAB [Suspect]
     Route: 041
     Dates: start: 20091211, end: 20091211
  11. ZYLORIC [Concomitant]
     Route: 048
     Dates: start: 20091016
  12. TOCILIZUMAB [Suspect]
     Route: 041
     Dates: start: 20090402, end: 20090402
  13. PROGRAF [Concomitant]
     Dosage: FORM: PERORAL AGENT.
     Dates: start: 20090109
  14. TOCILIZUMAB [Suspect]
     Route: 041
     Dates: start: 20090917, end: 20090917
  15. PREDONINE [Concomitant]
     Route: 048
  16. SAXIZON [Concomitant]
     Route: 042
     Dates: start: 20090108, end: 20090108
  17. SAXIZON [Concomitant]
     Dosage: FORM:INJECTION
     Route: 042
     Dates: start: 20090205, end: 20090205
  18. NU-LOTAN [Concomitant]
     Route: 048
  19. PREDNISOLONE [Concomitant]
     Dosage: FORM: PERORAL AGENT.
     Route: 048
     Dates: start: 20081212
  20. TOCILIZUMAB [Suspect]
     Route: 041
     Dates: start: 20090205, end: 20090205
  21. TOCILIZUMAB [Suspect]
     Route: 041
     Dates: start: 20090305, end: 20090305
  22. PARIET [Concomitant]
     Route: 048

REACTIONS (3)
  - EPISTAXIS [None]
  - NASAL SEPTUM PERFORATION [None]
  - PERIARTHRITIS [None]
